FAERS Safety Report 4768304-0 (Version None)
Quarter: 2005Q3

REPORT INFORMATION
  Report Type: 
  Country: None (occurrence: None)
  Receive Date: 20050906
  Receipt Date: 20050630
  Transmission Date: 20060218
  Serious: No
  Sender: FDA-Public Use
  Company Number: 2005-BP-11118BP

PATIENT
  Age: 57 Year
  Sex: Female

DRUGS (5)
  1. SPIRIVA [Suspect]
     Indication: ASTHMA
     Dosage: 18 MCG (18 MCG, QD), IH; 18 MCG EVERY OTHER DAY (18 MCG), IH
     Route: 055
     Dates: start: 20050601, end: 20050604
  2. SPIRIVA [Suspect]
     Indication: ASTHMA
     Dosage: 18 MCG (18 MCG, QD), IH; 18 MCG EVERY OTHER DAY (18 MCG), IH
     Route: 055
     Dates: start: 20050606
  3. PULMICORT [Concomitant]
  4. SINGULAIR [Concomitant]
  5. ACETYLCHOLINE SUPPLEMENT (ACETYLCHOLINE) [Concomitant]

REACTIONS (5)
  - ASTHENOPIA [None]
  - DIZZINESS [None]
  - DIZZINESS POSTURAL [None]
  - DRY EYE [None]
  - MIOSIS [None]
